FAERS Safety Report 16810677 (Version 1)
Quarter: 2019Q3

REPORT INFORMATION
  Report Type: Spontaneous
  Country: US (occurrence: US)
  Receive Date: 20190916
  Receipt Date: 20190916
  Transmission Date: 20191005
  Serious: No
  Sender: FDA-Public Use
  Company Number: US-BAYER-2019-168309

PATIENT
  Sex: Female

DRUGS (2)
  1. MIRENA [Suspect]
     Active Substance: LEVONORGESTREL
  2. MIRENA [Suspect]
     Active Substance: LEVONORGESTREL
     Dosage: 20 MCG/24HR, CONT
     Route: 015

REACTIONS (8)
  - Nervous system disorder [None]
  - Back pain [None]
  - Medical device site discomfort [None]
  - Acne [None]
  - Vulvovaginal mycotic infection [None]
  - Alopecia [None]
  - Disturbance in attention [None]
  - Loss of libido [None]
